FAERS Safety Report 7210813-9 (Version None)
Quarter: 2010Q4

REPORT INFORMATION
  Report Type: 
  Country: None (occurrence: None)
  Receive Date: 20101223
  Receipt Date: 20101103
  Transmission Date: 20110411
  Serious: Yes (Death, Life-Threatening, Other)
  Sender: FDA-Public Use
  Company Number: BG-021387

PATIENT
  Age: 81 Year
  Sex: Male

DRUGS (4)
  1. (CHLORAMBUCIL) [Suspect]
     Indication: CHRONIC LYMPHOCYTIC LEUKAEMIA
     Dosage: 52 MG QD
     Dates: start: 20101011, end: 20101027
  2. (OTHER BLOOD PRODUCTS) [Suspect]
     Indication: ANAEMIA
     Dosage: 300 ML, 300 ML QD, INTRAVENOUS
     Route: 042
     Dates: start: 20101026
  3. ALLOPURINOL [Concomitant]
  4. ENALAPRIL MALEATE [Concomitant]

REACTIONS (19)
  - ACUTE RESPIRATORY FAILURE [None]
  - ANAEMIA [None]
  - APHTHOUS STOMATITIS [None]
  - ASPARTATE AMINOTRANSFERASE INCREASED [None]
  - BLOOD ALKALINE PHOSPHATASE INCREASED [None]
  - BLOOD LACTATE DEHYDROGENASE INCREASED [None]
  - BLOOD POTASSIUM DECREASED [None]
  - BLOOD SODIUM INCREASED [None]
  - BONE MARROW FAILURE [None]
  - BRAIN OEDEMA [None]
  - CIRCULATORY COLLAPSE [None]
  - DILATATION VENTRICULAR [None]
  - ENTEROBACTER SEPSIS [None]
  - FEBRILE NEUTROPENIA [None]
  - GENERAL PHYSICAL HEALTH DETERIORATION [None]
  - HYPOPROTEINAEMIA [None]
  - PNEUMONIA [None]
  - RASH PUSTULAR [None]
  - RESPIRATORY FAILURE [None]
